FAERS Safety Report 7786888-5 (Version None)
Quarter: 2011Q3

REPORT INFORMATION
  Report Type: 
  Country: None (occurrence: None)
  Receive Date: 20110929
  Receipt Date: 20110922
  Transmission Date: 20111222
  Serious: Yes (Other)
  Sender: FDA-Public Use
  Company Number: JP-PFIZER INC-2011227443

PATIENT
  Age: 78 Year
  Sex: Female

DRUGS (2)
  1. PROTECADIN [Suspect]
     Indication: PROPHYLAXIS
     Dosage: UNK
     Route: 048
     Dates: start: 20110921
  2. LYRICA [Suspect]
     Indication: NEUROPATHY PERIPHERAL
     Dosage: 25 MG/DAY
     Route: 048
     Dates: start: 20110921

REACTIONS (2)
  - HYPOTHERMIA [None]
  - SOMNOLENCE [None]
